FAERS Safety Report 14881586 (Version 1)
Quarter: 2018Q2

REPORT INFORMATION
  Report Type: Spontaneous
  Country: IT (occurrence: IT)
  Receive Date: 20180511
  Receipt Date: 20180511
  Transmission Date: 20180711
  Serious: Yes (Hospitalization, Other)
  Sender: FDA-Public Use
  Company Number: IT-SA-2018SA122090

PATIENT
  Age: 52 Year
  Sex: Male

DRUGS (5)
  1. DOCETAXEL. [Suspect]
     Active Substance: DOCETAXEL
     Indication: PENILE CANCER
     Route: 065
     Dates: start: 2015, end: 201607
  2. 5-FU [Concomitant]
     Active Substance: FLUOROURACIL
     Indication: PENILE CANCER
     Route: 065
     Dates: start: 201506, end: 201509
  3. DOCETAXEL. [Suspect]
     Active Substance: DOCETAXEL
     Indication: PENILE CANCER
     Dosage: 2 MONO WEEKLY CYCLES
     Route: 065
     Dates: start: 201611
  4. CISPLATIN. [Suspect]
     Active Substance: CISPLATIN
     Indication: PENILE CANCER
     Route: 065
     Dates: start: 201506
  5. CAPECITABINE. [Concomitant]
     Active Substance: CAPECITABINE
     Indication: PENILE CANCER
     Route: 065

REACTIONS (9)
  - Neurotoxicity [Unknown]
  - Anuria [Not Recovered/Not Resolved]
  - Thrombocytopenia [Recovered/Resolved]
  - Haemolytic anaemia [Recovering/Resolving]
  - Haemoglobinaemia [Recovered/Resolved]
  - Atypical haemolytic uraemic syndrome [Unknown]
  - Blood creatinine increased [Unknown]
  - Blood lactate dehydrogenase increased [Recovered/Resolved]
  - Blood bilirubin increased [Unknown]

NARRATIVE: CASE EVENT DATE: 2016
